FAERS Safety Report 24533721 (Version 5)
Quarter: 2025Q4

REPORT INFORMATION
  Report Type: Spontaneous
  Country: EU (occurrence: EU)
  Receive Date: 20241022
  Receipt Date: 20251120
  Transmission Date: 20260117
  Serious: Yes (Disabling, Other)
  Sender: MYLAN
  Company Number: EU-SA-SAC20221228000269

PATIENT
  Age: 57 Year
  Sex: Female

DRUGS (53)
  1. ACETAMINOPHEN [Suspect]
     Active Substance: ACETAMINOPHEN
     Indication: Product used for unknown indication
     Dosage: UNK
  2. CYPROTERONE [Suspect]
     Active Substance: CYPROTERONE
     Indication: Contraception
     Dosage: UNK
  3. CYPROTERONE [Suspect]
     Active Substance: CYPROTERONE
     Indication: Hirsutism
     Dosage: UNK UNK, QD
     Dates: start: 20051115
  4. CYPROTERONE [Suspect]
     Active Substance: CYPROTERONE
     Dosage: UNK
  5. CYPROTERONE [Suspect]
     Active Substance: CYPROTERONE
     Dosage: UNK
  6. CYPROTERONE [Suspect]
     Active Substance: CYPROTERONE
     Dosage: 50 MILLIGRAM
  7. CYPROTERONE [Suspect]
     Active Substance: CYPROTERONE
     Dosage: 50 MILLIGRAM
  8. CYPROTERONE [Suspect]
     Active Substance: CYPROTERONE
     Dosage: 50 MILLIGRAM
  9. CYPROTERONE [Suspect]
     Active Substance: CYPROTERONE
     Dosage: 50 MILLIGRAM
  10. CYPROTERONE [Suspect]
     Active Substance: CYPROTERONE
     Dosage: 50 MILLIGRAM
  11. CYPROTERONE [Suspect]
     Active Substance: CYPROTERONE
     Dosage: UNK
  12. CYPROTERONE [Suspect]
     Active Substance: CYPROTERONE
     Dosage: UNK
  13. CYPROTERONE [Suspect]
     Active Substance: CYPROTERONE
     Dosage: UNK
  14. CYPROTERONE [Suspect]
     Active Substance: CYPROTERONE
     Dosage: 50 MILLIGRAM
  15. CYPROTERONE [Suspect]
     Active Substance: CYPROTERONE
     Dosage: 50 MILLIGRAM (STOP DATE: 2021)
  16. CYPROTERONE [Suspect]
     Active Substance: CYPROTERONE
     Dosage: 50 MILLIGRAM
  17. ACUPAN [Suspect]
     Active Substance: NEFOPAM HYDROCHLORIDE
     Indication: Product used for unknown indication
     Dosage: UNK, QD
  18. ETHAMSYLATE [Suspect]
     Active Substance: ETHAMSYLATE
     Indication: Product used for unknown indication
     Dosage: UNK
  19. BOTULINUM TOXIN NOS [Suspect]
     Active Substance: BOTULINUM TOXIN NOS
     Indication: Neuropathy peripheral
     Dosage: UNK (35 TO 40 IU EACH TIME)
  20. CHLORMADINONE ACETATE [Suspect]
     Active Substance: CHLORMADINONE ACETATE
     Indication: Product used for unknown indication
     Dosage: UNK
  21. CHLORMADINONE ACETATE [Suspect]
     Active Substance: CHLORMADINONE ACETATE
     Dosage: UNK
  22. CHLORMADINONE ACETATE [Suspect]
     Active Substance: CHLORMADINONE ACETATE
     Dosage: UNK,1/DAY DURING 3 MONTHS
  23. CHLORMADINONE ACETATE [Suspect]
     Active Substance: CHLORMADINONE ACETATE
     Dosage: UNK,5MG L TABLET/DAY DURING L0 DAYS/MONTHS
  24. CHLORMADINONE ACETATE [Suspect]
     Active Substance: CHLORMADINONE ACETATE
     Dosage: 5 MILLIGRAM
  25. CYPROTERONE ACETATE [Suspect]
     Active Substance: CYPROTERONE ACETATE
     Indication: Hirsutism
     Dosage: 50 MILLIGRAM (SCORED TABLET)
  26. CYPROTERONE ACETATE [Suspect]
     Active Substance: CYPROTERONE ACETATE
     Indication: Contraception
     Dosage: 50 MILLIGRAM
  27. CYPROTERONE ACETATE [Suspect]
     Active Substance: CYPROTERONE ACETATE
     Dosage: 50 MILLIGRAM (STOP DATE: 2022)
  28. CYPROTERONE ACETATE [Suspect]
     Active Substance: CYPROTERONE ACETATE
     Dosage: 50 MILLIGRAM (STOP DATE: 2022)
  29. CYPROTERONE ACETATE [Suspect]
     Active Substance: CYPROTERONE ACETATE
     Indication: Hirsutism
     Dosage: 50 MILLIGRAM (SCORED TABLET)
  30. CYPROTERONE ACETATE [Suspect]
     Active Substance: CYPROTERONE ACETATE
     Indication: Contraception
     Dosage: 50 MILLIGRAM (STOP DATE 2021)
  31. CYPROTERONE ACETATE [Suspect]
     Active Substance: CYPROTERONE ACETATE
     Indication: Hirsutism
     Dosage: 50 MILLIGRAM (SCORED TABLET)
  32. CYPROTERONE ACETATE [Suspect]
     Active Substance: CYPROTERONE ACETATE
     Indication: Contraception
  33. DOLIPRANE [Concomitant]
     Active Substance: ACETAMINOPHEN
     Indication: Product used for unknown indication
     Dosage: UNK, PRN
  34. Mycoster [Concomitant]
     Dosage: UNK
  35. Mycoster [Concomitant]
     Dosage: UNK
  36. Algesic [Concomitant]
     Dosage: UNK
  37. SMECTA [Concomitant]
     Active Substance: MONTMORILLONITE
     Dosage: UNK
  38. ECONAZOLE NITRATE [Concomitant]
     Active Substance: ECONAZOLE NITRATE
     Dosage: UNK
  39. Colposeptine [Concomitant]
     Dosage: UNK
  40. FENTICONAZOLE NITRATE [Concomitant]
     Active Substance: FENTICONAZOLE NITRATE
     Dosage: UNK
  41. LATANOPROST [Concomitant]
     Active Substance: LATANOPROST
     Indication: Product used for unknown indication
     Dosage: 1 DROP IN BOTH EYES FOR 6 MONTHS
  42. BIMATOPROST\TIMOLOL [Concomitant]
     Active Substance: BIMATOPROST\TIMOLOL
     Indication: Product used for unknown indication
     Dosage: UNK, 1 DROP IN BOTH EYES IN THE EVENING
  43. AZOPT [Concomitant]
     Active Substance: BRINZOLAMIDE
     Indication: Product used for unknown indication
     Dosage: ONE DROP IN BOTH EYES MORNING AND EVENING
  44. CARBOMER [Concomitant]
     Active Substance: CARBOMER
     Indication: Product used for unknown indication
     Dosage: SINGLE-DOSE EYE DROPS, SEVERAL TIMES A DAY AS NEEDED
  45. CILOXAN [Concomitant]
     Active Substance: CIPROFLOXACIN HYDROCHLORIDE
     Indication: Product used for unknown indication
     Dosage: UNK, 2 VIALS, 1 DROP IN THE RIGHT EYE EVERY 2 HOURS FOR 2 DAYS, THEN 1 DROP 6 TIMES A DAY FOR 2 DAYS
  46. HYALURONATE [Concomitant]
     Active Substance: HYALURONIC ACID
     Indication: Product used for unknown indication
     Dosage: UNK, 1 DROP IN BOTH EYES 2 TIMES A DAY FOR 6 MONTHS
  47. CIPROFLOXACIN [Concomitant]
     Active Substance: CIPROFLOXACIN
     Indication: Product used for unknown indication
     Dosage: BEDTIME IN THE RIGHT EYE FOR 6 DAYS
  48. POTASSIUM CHLORIDE [Concomitant]
     Active Substance: POTASSIUM CHLORIDE
     Indication: Product used for unknown indication
     Dosage: UNK, MORNING, FOR LUNCH AND AT NIGHT DURING 2 DAYS, AND TO STOP AFTER THE CORTICOSTEROID
  49. MEDROL [Concomitant]
     Active Substance: METHYLPREDNISOLONE
     Indication: Product used for unknown indication
     Dosage: UNK
  50. LOVENOX [Concomitant]
     Active Substance: ENOXAPARIN SODIUM
     Indication: Product used for unknown indication
     Dosage: 400UI AT NIGHT FOR 10DAYS,
  51. ROSUVASTATIN [Concomitant]
     Active Substance: ROSUVASTATIN
     Indication: Product used for unknown indication
     Dosage: 5 MILLIGRAM (5 MILLIGRAM, 1 TABLET AT NIGHT FOR 20 DAYS)
  52. TOCOPHEROL ACETATE [Concomitant]
     Active Substance: .ALPHA.-TOCOPHEROL ACETATE
     Indication: Product used for unknown indication
     Dosage: 4 DROP (THE MORNING FOR 10 DAYS)
  53. NEFOPAM [Concomitant]
     Active Substance: NEFOPAM
     Indication: Product used for unknown indication
     Dosage: UNK

REACTIONS (50)
  - Oculogyric crisis [Unknown]
  - Intracranial pressure increased [Unknown]
  - Neuropathy peripheral [Unknown]
  - Ovarioleukodystrophy [Unknown]
  - Pulmonary embolism [Unknown]
  - Embolism [Unknown]
  - Meningioma [Unknown]
  - Trismus [Unknown]
  - Skin hypopigmentation [Unknown]
  - Memory impairment [Unknown]
  - Facial pain [Unknown]
  - Balance disorder [Unknown]
  - Sexual dysfunction [Unknown]
  - Speech disorder [Unknown]
  - Job dissatisfaction [Unknown]
  - Pain [Unknown]
  - Scar [Unknown]
  - Periorbital pain [Unknown]
  - Heavy menstrual bleeding [Unknown]
  - Neuralgia [Unknown]
  - Dyspnoea exertional [Unknown]
  - Abnormal behaviour [Unknown]
  - Eye disorder [Unknown]
  - Skin lesion [Unknown]
  - Eye pain [Unknown]
  - Occipital neuralgia [Unknown]
  - Paraesthesia [Unknown]
  - Dyslexia [Unknown]
  - Disturbance in attention [Unknown]
  - Vertigo [Unknown]
  - Crying [Unknown]
  - Allodynia [Unknown]
  - Temporomandibular pain and dysfunction syndrome [Unknown]
  - Mastication disorder [Unknown]
  - Stress [Unknown]
  - Procedural pain [Unknown]
  - Post procedural complication [Unknown]
  - COVID-19 [Unknown]
  - Toothache [Unknown]
  - Menometrorrhagia [Unknown]
  - Uterine leiomyoma [Unknown]
  - Pain of skin [Unknown]
  - Malaise [Unknown]
  - Intercostal neuralgia [Unknown]
  - Asthenia [Unknown]
  - Headache [Unknown]
  - Dizziness [Unknown]
  - Breast pain [Unknown]
  - Rash erythematous [Unknown]
  - Elschnig^s bodies [Unknown]

NARRATIVE: CASE EVENT DATE: 20151201
